FAERS Safety Report 6630849-6 (Version None)
Quarter: 2010Q1

REPORT INFORMATION
  Report Type: 
  Country: None (occurrence: None)
  Receive Date: 20100311
  Receipt Date: 20100305
  Transmission Date: 20100710
  Serious: Yes (Other)
  Sender: FDA-Public Use
  Company Number: JP-WYE-H13941610

PATIENT
  Age: 85 Year
  Sex: Female

DRUGS (8)
  1. ZOSYN [Suspect]
     Indication: PNEUMONIA
     Route: 041
     Dates: start: 20091103, end: 20091208
  2. ZOSYN [Suspect]
     Indication: URINARY TRACT INFECTION
  3. SELENICA-R [Concomitant]
     Route: 048
     Dates: start: 20091123
  4. LASIX [Concomitant]
     Route: 048
     Dates: start: 20091028
  5. FAMOTIDINE [Concomitant]
     Route: 048
     Dates: start: 20091024
  6. LANIRAPID [Concomitant]
     Route: 048
     Dates: start: 20091024
  7. GABAPENTIN [Concomitant]
     Route: 048
     Dates: start: 20091001
  8. ASPIRIN [Concomitant]
     Route: 048
     Dates: start: 20091024

REACTIONS (1)
  - BONE MARROW FAILURE [None]
